FAERS Safety Report 9785318 (Version 3)
Quarter: 2014Q1

REPORT INFORMATION
  Report Type: Report from Study
  Country: US (occurrence: US)
  Receive Date: 20131227
  Receipt Date: 20140116
  Transmission Date: 20141002
  Serious: Yes (Hospitalization)
  Sender: FDA-Public Use
  Company Number: US-JNJFOC-20131213130

PATIENT
  Age: 15 Year
  Sex: Male
  Weight: 40.6 kg

DRUGS (7)
  1. REMICADE [Suspect]
     Indication: CROHN^S DISEASE
     Route: 042
     Dates: start: 20100202, end: 20130128
  2. VITAMIN B6 [Concomitant]
     Route: 065
  3. VITAMIN D3 [Concomitant]
     Route: 065
  4. GROWTH HORMONE [Concomitant]
     Route: 065
  5. WELLBUTRIN [Concomitant]
  6. FERROUS SULPHATE [Concomitant]
     Route: 065
  7. MIRALAX [Concomitant]
     Route: 065

REACTIONS (1)
  - Crohn^s disease [Recovered/Resolved]
